FAERS Safety Report 5232166-8 (Version None)
Quarter: 2007Q1

REPORT INFORMATION
  Report Type: 
  Country: None (occurrence: None)
  Receive Date: 20061205
  Receipt Date: 20060808
  Transmission Date: 20070707
  Serious: No
  Sender: FDA-Public Use
  Company Number: PHEH2006US10137

PATIENT
  Age: 63 Year
  Sex: Male

DRUGS (1)
  1. EXJADE [Suspect]
     Dosage: 1750 MG,QD,ORAL
     Route: 048
     Dates: start: 20060101

REACTIONS (2)
  - ABDOMINAL DISTENSION [None]
  - DYSPEPSIA [None]
